FAERS Safety Report 6048565-0 (Version None)
Quarter: 2009Q1

REPORT INFORMATION
  Report Type: 
  Country: None (occurrence: None)
  Receive Date: 20090123
  Receipt Date: 20090113
  Transmission Date: 20090719
  Serious: Yes (Hospitalization, Other)
  Sender: FDA-Public Use
  Company Number: AR-ABBOTT-08P-007-0450321-00

PATIENT
  Sex: Female

DRUGS (5)
  1. NORVIR [Suspect]
     Indication: HIV INFECTION
     Dates: start: 20060428, end: 20080208
  2. TRUVADA [Suspect]
     Indication: HIV INFECTION
     Dates: start: 20060428, end: 20080208
  3. REYATAZ [Suspect]
     Indication: HIV INFECTION
     Dosage: 300 MG DAILY
     Route: 048
     Dates: start: 20060428, end: 20080204
  4. DESOGESTREL [Concomitant]
     Indication: DRUG USE FOR UNKNOWN INDICATION
     Dates: start: 20060603
  5. ETHINYL ESTRADIOL TAB [Concomitant]
     Indication: DRUG USE FOR UNKNOWN INDICATION
     Dates: start: 20050901, end: 20060522

REACTIONS (1)
  - ABORTION SPONTANEOUS [None]
